FAERS Safety Report 23468529 (Version 2)
Quarter: 2024Q1

REPORT INFORMATION
  Report Type: Other
  Country: IN (occurrence: IN)
  Receive Date: 20240202
  Receipt Date: 20240213
  Transmission Date: 20240410
  Serious: Yes (Death, Hospitalization, Other)
  Sender: FDA-Public Use
  Company Number: IN-LUPIN HEALTHCARE (UK) LIMITED-2024-00525

PATIENT

DRUGS (4)
  1. TIOTROPIUM BROMIDE [Suspect]
     Active Substance: TIOTROPIUM BROMIDE
     Indication: Asthma
     Dosage: 2 DOSAGE FORM, QD
     Route: 048
     Dates: start: 20220921
  2. FAROPENEM [Suspect]
     Active Substance: FAROPENEM
     Indication: Product used for unknown indication
     Dosage: UNK UNK, TID
     Route: 065
     Dates: start: 20220921
  3. OMEPRAZOLE [Suspect]
     Active Substance: OMEPRAZOLE
     Indication: Product used for unknown indication
     Dosage: UNK, QD
     Route: 065
     Dates: start: 20220921
  4. BROMHEXINE HYDROCHLORIDE\GUAIFENESIN\TERBUTALINE SULFATE [Suspect]
     Active Substance: BROMHEXINE HYDROCHLORIDE\GUAIFENESIN\TERBUTALINE SULFATE
     Indication: Product used for unknown indication
     Dosage: UNK, TID
     Route: 065
     Dates: start: 20220921

REACTIONS (4)
  - Asthma [Fatal]
  - Diabetes mellitus [Fatal]
  - Adverse event [Fatal]
  - Drug ineffective [Fatal]

NARRATIVE: CASE EVENT DATE: 20231208
